FAERS Safety Report 9701357 (Version 2)
Quarter: 2013Q4

REPORT INFORMATION
  Report Type: Spontaneous
  Country: US (occurrence: US)
  Receive Date: 20131121
  Receipt Date: 20131121
  Transmission Date: 20140711
  Serious: No
  Sender: FDA-Public Use
  Company Number: US-GILEAD-2008-0016386

PATIENT
  Age: 65 Year
  Sex: Female
  Weight: 90.26 kg

DRUGS (9)
  1. LETAIRIS [Suspect]
     Route: 048
     Dates: start: 20080416, end: 20080507
  2. REVATIO [Concomitant]
     Route: 048
  3. REMODULIN [Concomitant]
     Route: 058
  4. COUMADIN [Concomitant]
     Route: 048
  5. NORVASC [Concomitant]
     Route: 048
  6. VASOTEC [Concomitant]
     Route: 048
  7. CLARITIN [Concomitant]
     Route: 048
  8. NASOFED [Concomitant]
     Route: 048
  9. OMEPRAZOLE [Concomitant]
     Route: 048

REACTIONS (4)
  - Abdominal distension [Recovered/Resolved]
  - Dyspnoea [Recovered/Resolved]
  - Joint swelling [Recovered/Resolved]
  - Flushing [Recovered/Resolved]
